FAERS Safety Report 9056651 (Version 1)
Quarter: 2013Q1

REPORT INFORMATION
  Report Type: Report from Study
  Country: DE (occurrence: DE)
  Receive Date: 20130204
  Receipt Date: 20130204
  Transmission Date: 20140127
  Serious: Yes (Life-Threatening, Hospitalization, Disabling, Other)
  Sender: FDA-Public Use
  Company Number: DE-PFIZER INC-DE-WYE-H09825809

PATIENT
  Age: 69 Year
  Sex: Male
  Weight: 68.9 kg

DRUGS (143)
  1. SIROLIMUS [Suspect]
     Indication: PROPHYLAXIS AGAINST TRANSPLANT REJECTION
     Dosage: 9 MG, 1X/DAY
     Route: 048
     Dates: start: 20030709, end: 20030711
  2. SIROLIMUS [Suspect]
     Dosage: 3.0 MG, 1X/DAY
     Route: 048
     Dates: start: 20030712, end: 20030717
  3. SIROLIMUS [Suspect]
     Dosage: 2 MG, 1X/DAY
     Route: 048
     Dates: start: 20030718, end: 20030725
  4. SIROLIMUS [Suspect]
     Dosage: 1 MG, 1X/DAY
     Route: 048
     Dates: start: 20030726, end: 20030731
  5. SIROLIMUS [Suspect]
     Dosage: 1 MG, SINGLE
     Route: 048
     Dates: start: 20030804, end: 20030804
  6. SIROLIMUS [Suspect]
     Dosage: 1 MG, 1X/DAY
     Route: 048
     Dates: start: 20030810, end: 20030813
  7. SIROLIMUS [Suspect]
     Dosage: 1 MG, 1X/DAY
     Route: 048
     Dates: start: 20030815, end: 20030816
  8. SIROLIMUS [Suspect]
     Dosage: 1 MG, 1X/DAY
     Route: 048
     Dates: start: 20030818, end: 20030916
  9. SIROLIMUS [Suspect]
     Dosage: 2 MG, 1X/DAY
     Route: 048
     Dates: start: 20030917, end: 20031012
  10. SIROLIMUS [Suspect]
     Dosage: 1 MG, 1X/DAY
     Route: 048
     Dates: start: 20031013, end: 20031126
  11. SIROLIMUS [Suspect]
     Dosage: 0.7 MG, 1X/DAY
     Route: 048
     Dates: start: 20031127, end: 20040331
  12. DACLIZUMAB [Suspect]
     Indication: PROPHYLAXIS AGAINST TRANSPLANT REJECTION
     Dosage: 140 MG, SINGLE
     Route: 042
     Dates: start: 20030709, end: 20030709
  13. DACLIZUMAB [Suspect]
     Dosage: 75 MG, UNK
     Route: 042
     Dates: start: 20030723
  14. DACLIZUMAB [Suspect]
     Dosage: 65 MG, UNK
     Route: 042
     Dates: start: 20030806
  15. DACLIZUMAB [Suspect]
     Dosage: 60 MG, UNK
     Route: 042
     Dates: start: 20030820
  16. DACLIZUMAB [Suspect]
     Dosage: 70 MG, UNK
     Route: 042
     Dates: start: 20030903
  17. MYCOPHENOLATE MOFETIL [Suspect]
     Indication: PROPHYLAXIS AGAINST TRANSPLANT REJECTION
     Dosage: 1 G, 2X/DAY
     Route: 048
     Dates: start: 20030709, end: 20030715
  18. MYCOPHENOLATE MOFETIL [Suspect]
     Dosage: 500 MG, 2X/DAY
     Route: 042
     Dates: start: 20030716, end: 20030718
  19. MYCOPHENOLATE MOFETIL [Suspect]
     Dosage: 1 G, 2X/DAY
     Route: 048
     Dates: start: 20030719, end: 20030730
  20. MYCOPHENOLATE MOFETIL [Suspect]
     Dosage: 1 G, SINGLE
     Route: 048
     Dates: start: 20030731, end: 20030731
  21. MYCOPHENOLATE MOFETIL [Suspect]
     Dosage: 250 MG, SINGLE
     Route: 048
     Dates: start: 20030807, end: 20030807
  22. MYCOPHENOLATE MOFETIL [Suspect]
     Dosage: 250 MG, 2X/DAY
     Route: 048
     Dates: start: 20030808, end: 20030822
  23. MYCOPHENOLATE MOFETIL [Suspect]
     Dosage: 250 MG, 2X/DAY
     Route: 048
     Dates: start: 20030823, end: 20030901
  24. MYCOPHENOLATE MOFETIL [Suspect]
     Dosage: 250 MG, 2X/DAY
     Route: 048
     Dates: start: 20030908, end: 20031114
  25. MYCOPHENOLATE MOFETIL [Suspect]
     Dosage: UNK
     Route: 048
     Dates: start: 20031114
  26. MYCOPHENOLATE MOFETIL [Suspect]
     Dosage: 500 MG, 2X/DAY
     Route: 048
     Dates: start: 20031119, end: 20031126
  27. MYCOPHENOLATE MOFETIL [Suspect]
     Dosage: 1 G, 2X/DAY
     Route: 048
     Dates: start: 20031127, end: 20031219
  28. MYCOPHENOLATE MOFETIL [Suspect]
     Dosage: 500 MG, 2X/DAY
     Route: 048
     Dates: start: 20031220
  29. MYCOPHENOLATE MOFETIL [Suspect]
     Dosage: 1 G, 2X/DAY
     Route: 048
     Dates: end: 20040325
  30. MYCOPHENOLATE MOFETIL [Suspect]
     Dosage: 250 MG, 2X/DAY
     Route: 048
     Dates: start: 20040402, end: 20040507
  31. MYCOPHENOLATE MOFETIL [Suspect]
     Dosage: 250 MG, 2X/DAY
     Route: 048
     Dates: start: 20040527
  32. PREDNISOLONE [Suspect]
     Indication: PROPHYLAXIS AGAINST TRANSPLANT REJECTION
     Dosage: 250 MG, 3X/DAY
     Route: 042
     Dates: start: 20030709, end: 20030709
  33. PREDNISOLONE [Suspect]
     Dosage: 250 MG, 1X/DAY
     Route: 042
     Dates: start: 20030710, end: 20030710
  34. PREDNISOLONE [Suspect]
     Indication: PROPHYLAXIS AGAINST TRANSPLANT REJECTION
     Dosage: 250 MG, 3X/DAY
     Route: 042
     Dates: start: 20030709
  35. PREDNISOLONE [Suspect]
     Dosage: 250 MG, SINGLE
     Route: 042
     Dates: start: 20030709, end: 20030709
  36. PREDNISOLONE [Suspect]
     Dosage: 7.5 MG, 1X/DAY
     Route: 048
     Dates: start: 20030711
  37. PREDNISOLONE [Suspect]
     Dosage: 5 MG, 1X/DAY
     Route: 048
     Dates: start: 20031230
  38. PREDNISOLONE [Suspect]
     Dosage: 2.5 MG, 1X/DAY
     Route: 048
     Dates: start: 20040605
  39. PREDNISONE [Suspect]
     Indication: PROPHYLAXIS AGAINST TRANSPLANT REJECTION
     Dosage: 75 MG, SINGLE
     Route: 048
     Dates: start: 20030710
  40. PREDNISONE [Suspect]
     Dosage: 50 MG, 2X/DAY
     Route: 048
     Dates: start: 20030711
  41. PREDNISONE [Suspect]
     Dosage: 75 MG, 1X/DAY
     Route: 048
     Dates: start: 20030713
  42. PREDNISONE [Suspect]
     Dosage: 50 MG, 1X/DAY
     Route: 048
     Dates: start: 20030715
  43. PREDNISONE [Suspect]
     Dosage: 35 MG, 1X/DAY
     Route: 048
     Dates: start: 20030717
  44. PREDNISONE [Suspect]
     Dosage: 30 MG, 1X/DAY
     Route: 048
     Dates: start: 20030724
  45. PREDNISONE [Suspect]
     Dosage: 25 MG, 1X/DAY
     Route: 048
     Dates: start: 20030731
  46. PREDNISONE [Suspect]
     Dosage: 100 MG, 1X/DAY
     Route: 048
     Dates: start: 20030819
  47. PREDNISONE [Suspect]
     Dosage: 75 MG, 1X/DAY
     Route: 048
     Dates: start: 20030821
  48. PREDNISONE [Suspect]
     Dosage: 50 MG, 1X/DAY
     Route: 048
     Dates: start: 20030824
  49. PREDNISONE [Suspect]
     Dosage: 30 MG, 1X/DAY
     Route: 048
     Dates: start: 20030827
  50. PREDNISONE [Suspect]
     Dosage: 25 MG, 1X/DAY
     Route: 048
     Dates: start: 20030830
  51. PREDNISONE [Suspect]
     Dosage: 20 MG, 1X/DAY
     Route: 048
     Dates: start: 20030906
  52. PREDNISONE [Suspect]
     Dosage: 15 MG, 1X/DAY
     Route: 048
     Dates: start: 20030930
  53. PREDNISONE [Suspect]
     Dosage: 10 MG, 1X/DAY
     Route: 048
     Dates: start: 20031028
  54. PREDNISONE [Suspect]
     Dosage: 7.5 MG, 1X/DAY
     Route: 048
     Dates: start: 20031125
  55. PREDNISONE [Suspect]
     Dosage: 5 MG, 1X/DAY
     Route: 048
     Dates: start: 20031230
  56. PREDNISONE [Suspect]
     Dosage: 2.5 MG, 1X/DAY
     Route: 048
     Dates: start: 20040605
  57. ACETYLSALICYLIC ACID [Suspect]
     Dosage: 100 MG, 1X/DAY
     Route: 048
     Dates: start: 20030710, end: 20030715
  58. CLOPIDOGREL [Suspect]
     Dosage: 75 MG, 1X/DAY
     Route: 048
     Dates: start: 20030710, end: 20030715
  59. PROGRAF [Suspect]
     Indication: PROPHYLAXIS AGAINST TRANSPLANT REJECTION
     Dosage: 0.5 MG, 2X/DAY
     Route: 048
     Dates: start: 20040402
  60. PROGRAF [Suspect]
     Dosage: 0.75 MG, 2X/DAY
     Route: 048
     Dates: start: 20040824
  61. ACC [Concomitant]
     Dosage: 1 DF, 3X/DAY
     Route: 048
     Dates: start: 20030801, end: 20030812
  62. ACC [Concomitant]
     Dosage: UNK
     Route: 065
     Dates: start: 20040325
  63. MAALOXAN [Concomitant]
     Dosage: 1 DF, UNK
     Route: 065
     Dates: start: 20030715, end: 20030715
  64. FERRO SANOL DUODENAL [Concomitant]
     Dosage: 1 DF, 2X/DAY
     Route: 048
     Dates: start: 20031021, end: 20040324
  65. CORDAREX [Concomitant]
     Dosage: UNK
     Route: 042
     Dates: start: 20030714, end: 20030717
  66. CORDAREX [Concomitant]
     Dosage: 200 MG, 3X/DAY
     Route: 048
     Dates: start: 20030712, end: 20030713
  67. CORDAREX [Concomitant]
     Dosage: 200 MG, 1X/DAY
     Route: 048
     Dates: start: 20030718, end: 20030921
  68. NORVASC [Concomitant]
     Dosage: UNK
     Route: 065
     Dates: start: 20030709, end: 20030710
  69. NORVASC [Concomitant]
     Dosage: 5 MG, 1X/DAY
     Route: 048
     Dates: start: 20030711, end: 20030920
  70. NORVASC [Concomitant]
     Dosage: 5 MG, 1X/DAY
     Route: 048
     Dates: start: 20031127
  71. NORVASC [Concomitant]
     Dosage: 5 MG, 2X/DAY
     Route: 048
     Dates: start: 20040712
  72. AMPHO-MORONAL [Concomitant]
     Dosage: 1 PIPPETTE, 4X/DAY
     Route: 048
  73. UNACID [Concomitant]
     Dosage: UNK
     Route: 065
     Dates: start: 20030710, end: 20031126
  74. UNACID [Concomitant]
     Dosage: 1.5 G, 2X/DAY
     Route: 042
     Dates: start: 20030716, end: 20030717
  75. UNACID [Concomitant]
     Dosage: 1 DF, 1X/DAY
     Route: 048
     Dates: start: 20030710, end: 20030715
  76. UNACID [Concomitant]
     Dosage: 1 DF, 2X/DAY
     Route: 048
     Dates: start: 20030718, end: 20030801
  77. UNACID [Concomitant]
     Dosage: 1 DF, 2X/DAY
     Route: 048
     Dates: start: 20031117, end: 20031126
  78. ROCALTROL [Concomitant]
     Dosage: 0.25 UG, 1X/DAY
     Route: 048
  79. DILATREND [Concomitant]
     Dosage: 6.25 MG, 2X/DAY
     Route: 048
     Dates: start: 20030712
  80. DILATREND [Concomitant]
     Dosage: 25 MG, 2X/DAY
     Route: 048
     Dates: start: 20030919
  81. DILATREND [Concomitant]
     Dosage: 12.5 MG, 2X/DAY
     Route: 048
     Dates: start: 20040326
  82. DILATREND [Concomitant]
     Dosage: 6.25 MG, 2X/DAY
     Route: 048
     Dates: start: 20040712
  83. CEFOTIAM [Concomitant]
     Dosage: 2 G, 2X/DAY
     Route: 042
     Dates: start: 20030821, end: 20030826
  84. CEFTRIAXONE [Concomitant]
     Dosage: 1 G, 2X/DAY
     Route: 042
     Dates: start: 20031114, end: 20031117
  85. CEFTRIAXONE [Concomitant]
     Dosage: 0.5 G, 2X/DAY
     Route: 042
     Dates: start: 20031214, end: 20031218
  86. CEFUROXIME [Concomitant]
     Dosage: 250 MG, 2X/DAY
     Route: 048
     Dates: start: 20030826, end: 20030829
  87. CIPROBAY [Concomitant]
     Dosage: 1 DF, 2X/DAY
     Route: 048
     Dates: start: 20030909, end: 20031115
  88. CLONIDINE [Concomitant]
     Dosage: UNK MG, 1X/DAY
     Route: 048
     Dates: start: 2003, end: 20030714
  89. CLONIDINE [Concomitant]
     Dosage: 0.25 MG, 1X/DAY
     Route: 048
     Dates: start: 2003
  90. TRANXILIUM [Concomitant]
     Dosage: 10 MG, 1X/DAY
     Route: 048
  91. ARANESP [Concomitant]
     Dosage: 30 UG, WEEKLY
     Route: 058
     Dates: start: 20030813, end: 20040325
  92. DOXAZOSIN [Concomitant]
     Dosage: 4 MG, 2X/DAY
     Route: 048
     Dates: start: 20040712
  93. ENAHEXAL [Concomitant]
     Dosage: 5 MG, 1X/DAY
     Route: 048
     Dates: start: 20040712
  94. EPOETIN ALFA [Concomitant]
     Dosage: 3000 IU, 1X/DAY
     Route: 058
     Dates: start: 20030726
  95. EPOETIN ALFA [Concomitant]
     Dosage: 300 IU, EVERY 3 WEEKS
     Dates: start: 20030805, end: 20030812
  96. FLUCONAZOLE [Concomitant]
     Dosage: 100 MG, 2X/DAY
     Route: 048
     Dates: start: 20030801, end: 20030818
  97. LOCOL [Concomitant]
     Dosage: 80 MG, 1X/DAY
     Route: 048
     Dates: start: 20031213
  98. LOCOL [Concomitant]
     Dosage: 80 MG, 1X/DAY
     Route: 048
     Dates: start: 20040712
  99. FUROSEMIDE [Concomitant]
     Dosage: 40 MG, 1X/DAY
     Route: 048
     Dates: start: 20030712, end: 20030715
  100. FUROSEMIDE [Concomitant]
     Dosage: 40 MG, 1X/DAY
     Route: 048
     Dates: start: 20030812, end: 20030823
  101. PERLINGANIT [Concomitant]
     Dosage: UNK MG, AS NEEDED
     Route: 042
     Dates: start: 20030712, end: 20030716
  102. HEPARIN SODIUM [Concomitant]
     Dosage: UNK
     Route: 042
     Dates: start: 20030711
  103. HEPARIN SODIUM [Concomitant]
     Dosage: UNK
     Route: 058
     Dates: start: 20030719, end: 20030812
  104. SALVIATHYMOL [Concomitant]
     Dosage: 1 DF, 3X/DAY
     Route: 061
     Dates: start: 20030802, end: 20030911
  105. HEXETIDINE [Concomitant]
     Dosage: 1 DF, 3X/DAY
     Route: 061
     Dates: start: 20030724, end: 20030803
  106. ACTRAPID HUMAN [Concomitant]
     Dosage: UNK
     Route: 058
     Dates: start: 20030711
  107. ACTRAPHANE HM [Concomitant]
     Dosage: UNK
  108. ATROVENT [Concomitant]
     Dosage: 1 DF, 2X/DAY
     Dates: start: 20030809, end: 20030910
  109. ISOKET RETARD [Concomitant]
     Dosage: 40 MG, 2X/DAY
     Route: 048
     Dates: start: 20030717, end: 20030921
  110. BIFITERAL [Concomitant]
     Dosage: 20 ML, 1X/DAY
     Route: 048
     Dates: end: 20031113
  111. MAGNESIOCARD [Concomitant]
     Route: 042
  112. METOPROLOL [Concomitant]
     Dosage: 23.5 MG, 2X/DAY
     Route: 048
     Dates: start: 20030709, end: 20030712
  113. CLONT [Concomitant]
     Dosage: 0.5 G, 1X/DAY
     Route: 042
     Dates: start: 20030821, end: 20030825
  114. CLONT [Concomitant]
     Dosage: 500 MG, SINGLE
     Route: 042
     Dates: end: 20030826
  115. CLONT [Concomitant]
     Dosage: 500 MG, 3X/DAY
     Route: 042
     Dates: start: 20031114
  116. CLONT [Concomitant]
     Dosage: 0.5 G, 2X/DAY
     Route: 042
     Dates: start: 20031115, end: 20031116
  117. CLONT [Concomitant]
     Dosage: 400 MG, 3X/DAY
     Route: 048
     Dates: start: 20030826
  118. CLONT [Concomitant]
     Dosage: 500 MG, 3X/DAY
     Route: 048
     Dates: start: 20031117, end: 20031203
  119. MOLSIDOMINE [Concomitant]
     Dosage: 8 MG, 1X/DAY
     Route: 048
     Dates: start: 20030717, end: 20030920
  120. AVELOX [Concomitant]
     Dosage: 1 DF, 2X/DAY
     Route: 042
     Dates: start: 20030724, end: 20030803
  121. AVELOX [Concomitant]
     Dosage: 400 MG, 1X/DAY
     Route: 048
     Dates: start: 20040325, end: 20040415
  122. PANTOPRAZOLE [Concomitant]
     Dosage: 40 MG, 2X/DAY
     Route: 042
     Dates: start: 20030716, end: 20030719
  123. PANTOPRAZOLE [Concomitant]
     Dosage: UNK
     Route: 042
     Dates: end: 20030720
  124. PANTOZOL [Concomitant]
     Dosage: 40 MG, 2X/DAY
     Route: 048
     Dates: start: 20030720
  125. PANTOZOL [Concomitant]
     Dosage: 40 MG, 1X/DAY
     Route: 048
     Dates: start: 20030911
  126. TAZOBAC [Concomitant]
     Dosage: 4.5 MG, 2X/DAY
     Route: 042
     Dates: start: 20030731, end: 20030811
  127. PRAVASIN [Concomitant]
     Dosage: 20 MG, 1X/DAY
     Route: 048
     Dates: start: 20030712, end: 20030823
  128. PRAVASIN [Concomitant]
     Dosage: 10 MG, 1X/DAY
     Route: 048
     Dates: start: 20030930, end: 20041212
  129. RANITIDINE [Concomitant]
     Dosage: 150 MG, 2X/DAY
     Route: 042
     Dates: end: 20030806
  130. ACTONEL [Concomitant]
     Dosage: 5 MG, 1X/DAY
     Route: 048
     Dates: end: 20031113
  131. RISPERIDONE [Concomitant]
     Route: 042
  132. SULTANOL [Concomitant]
     Dosage: UNK DF, 2X/DAY
     Route: 050
     Dates: end: 20030814
  133. SULTANOL [Concomitant]
     Dosage: 4 DF, 2X/DAY
     Route: 050
     Dates: start: 20030908
  134. KEPINOL [Concomitant]
     Dosage: 1 DF, 1X/DAY
     Route: 048
     Dates: start: 20030710
  135. TAMSULOSIN HYDROCHLORIDE [Concomitant]
     Dosage: 0.4 MG, 2X/DAY
     Route: 048
  136. SPASMEX [Concomitant]
     Dosage: 30 MG, 3X/DAY
     Route: 048
     Dates: end: 20030805
  137. EBRANTIL [Concomitant]
     Dosage: 3 MG, AS NEEDED
     Route: 042
     Dates: start: 20030714, end: 20030718
  138. EBRANTIL [Concomitant]
     Dosage: 40 MG, 1 HOUR
  139. ACETYLCYSTEINE [Concomitant]
     Dosage: 1 DF, 3X/DAY
     Route: 048
     Dates: start: 20040325
  140. AMPHOTERICIN B [Concomitant]
     Dosage: 1 DF, 4X/DAY
     Route: 061
     Dates: start: 20030710, end: 20030820
  141. AMPHOTERICIN B [Concomitant]
     Dosage: 1 DF, 4X/DAY
     Route: 061
     Dates: start: 20030917
  142. AMPHOTERICIN B [Concomitant]
     Dosage: 1 DF, 6 TIMES DAILY
     Route: 061
     Dates: start: 20040325
  143. AMLODIPINE [Concomitant]
     Dosage: 1.5 G, 2 TOTAL
     Route: 042
     Dates: start: 20030709, end: 20030710

REACTIONS (16)
  - Intestinal prolapse [Recovered/Resolved]
  - Laryngitis bacterial [Recovered/Resolved]
  - Laryngitis fungal [Recovered/Resolved]
  - Oesophageal candidiasis [Recovered/Resolved]
  - Lymphocele [Recovered/Resolved]
  - Abdominal hernia [Recovered/Resolved]
  - Pneumonia [Recovered/Resolved]
  - Wound dehiscence [Recovered/Resolved]
  - Acute coronary syndrome [Recovered/Resolved]
  - Myocardial infarction [Recovered/Resolved]
  - Gastrointestinal haemorrhage [Recovered/Resolved]
  - Acute abdomen [Recovered/Resolved]
  - Ureteric stenosis [Recovered/Resolved]
  - Escherichia urinary tract infection [Recovered/Resolved]
  - Blood creatinine increased [Recovered/Resolved]
  - Diverticulitis [Recovered/Resolved]
